FAERS Safety Report 9900363 (Version 1)
Quarter: 2014Q1

REPORT INFORMATION
  Report Type: Spontaneous
  Country: US (occurrence: US)
  Receive Date: 20140216
  Receipt Date: 20140216
  Transmission Date: 20141002
  Serious: Yes (Other)
  Sender: FDA-Public Use
  Company Number: US-PFIZER INC-2014040393

PATIENT
  Age: 51 Year
  Sex: Male

DRUGS (5)
  1. IBUPROFEN [Suspect]
     Indication: PAIN MANAGEMENT
     Dosage: UNK
     Route: 065
  2. LITHIUM CARBONATE [Interacting]
     Dosage: UNK
     Route: 065
  3. RISPERIDONE [Interacting]
     Dosage: UNK
     Route: 065
  4. QUETIAPINE FUMARATE [Interacting]
     Dosage: UNK
     Route: 065
  5. VALPROATE SODIUM [Interacting]
     Dosage: UNK
     Route: 065

REACTIONS (2)
  - Toxicity to various agents [Unknown]
  - Drug interaction [Unknown]
